FAERS Safety Report 14472719 (Version 1)
Quarter: 2018Q1

REPORT INFORMATION
  Report Type: Report from Study
  Country: None (occurrence: US)
  Receive Date: 20180201
  Receipt Date: 20180201
  Transmission Date: 20180509
  Serious: Yes (Other)
  Sender: FDA-Public Use
  Company Number: US-ABBVIE-18K-163-2238722-00

PATIENT
  Age: 64 Year
  Sex: Female

DRUGS (1)
  1. HUMIRA [Suspect]
     Active Substance: ADALIMUMAB
     Indication: PSORIASIS
     Route: 058

REACTIONS (8)
  - Gallbladder operation [Recovered/Resolved]
  - Impaired work ability [Recovered/Resolved]
  - Glucose tolerance impaired [Not Recovered/Not Resolved]
  - Impaired healing [Not Recovered/Not Resolved]
  - Peripheral arterial occlusive disease [Not Recovered/Not Resolved]
  - Psoriasis [Recovered/Resolved]
  - Stent placement [Recovered/Resolved]
  - Hypertension [Not Recovered/Not Resolved]

NARRATIVE: CASE EVENT DATE: 2017
